FAERS Safety Report 20130835 (Version 1)
Quarter: 2021Q4

REPORT INFORMATION
  Report Type: Spontaneous
  Country: US (occurrence: US)
  Receive Date: 20211130
  Receipt Date: 20211130
  Transmission Date: 20220303
  Serious: No
  Sender: FDA-Public Use
  Company Number: US-PERRIGO-21US004479

PATIENT
  Age: 75 Year
  Sex: Female
  Weight: 61.224 kg

DRUGS (2)
  1. NICOTINE POLACRILEX [Suspect]
     Active Substance: NICOTINE
     Indication: Smoking cessation therapy
     Dosage: 2 MG, HOURLY, UP TO 6 TIMES DAILY
     Route: 002
     Dates: start: 202103, end: 202103
  2. NICOTINE POLACRILEX [Suspect]
     Active Substance: NICOTINE
     Indication: Smoking cessation therapy
     Dosage: 2 MG, HOURLY, UP TO 6 TIMES DAILY
     Route: 002
     Dates: start: 202103, end: 20210329

REACTIONS (3)
  - Oropharyngeal discomfort [Recovered/Resolved]
  - Dyspepsia [Recovered/Resolved]
  - Hiccups [Recovered/Resolved]

NARRATIVE: CASE EVENT DATE: 20210301
